FAERS Safety Report 8063534-7 (Version None)
Quarter: 2012Q1

REPORT INFORMATION
  Report Type: 
  Country: None (occurrence: None)
  Receive Date: 20120117
  Receipt Date: 20120103
  Transmission Date: 20120608
  Serious: Yes (Death)
  Sender: FDA-Public Use
  Company Number: B0773509A

PATIENT
  Age: 40 Year
  Sex: Female

DRUGS (10)
  1. QUETIAPINE FUMARATE [Suspect]
     Dosage: ORAL
     Route: 048
  2. CLOZAPINE [Suspect]
     Dosage: ORAL
     Route: 048
  3. OMEPRAZOLE [Suspect]
     Dosage: ORAL
     Route: 048
  4. CLONIDINE [Suspect]
     Dosage: ORAL
     Route: 048
  5. BUPROPION HYDROCHLORIDE [Suspect]
     Dosage: ORAL
     Route: 048
  6. CYCLOBENZAPRINE HCL [Suspect]
     Dosage: ORAL
     Route: 048
  7. GABAPENTIN [Suspect]
     Dosage: ORAL
     Route: 048
  8. CLONAZEPAM [Suspect]
     Dosage: ORAL
     Route: 048
  9. DEXTROAMPHETAMINE SULFATE [Suspect]
     Dosage: ORAL
     Route: 048
  10. DESVENLFAXINE SUCCINATE (FORMULATION UNKNOWN) DESVENLAFAXINE SUCCINATE [Suspect]

REACTIONS (1)
  - COMPLETED SUICIDE [None]
